FAERS Safety Report 7335564-1 (Version None)
Quarter: 2011Q1

REPORT INFORMATION
  Report Type: 
  Country: None (occurrence: None)
  Receive Date: 20110307
  Receipt Date: 20110302
  Transmission Date: 20110831
  Serious: Yes (Other)
  Sender: FDA-Public Use
  Company Number: ES-PFIZER INC-2011046705

PATIENT
  Age: 71 Year
  Sex: Male

DRUGS (9)
  1. INSPRA [Suspect]
     Indication: HYPERTENSION
     Dosage: 50 MG, 1X/DAY
     Route: 048
     Dates: start: 20100806, end: 20100919
  2. ADIRO [Suspect]
     Indication: PROPHYLAXIS
     Dosage: 100 MG, 1X/DAY
     Route: 048
     Dates: start: 20100714, end: 20100919
  3. PANTOPRAZOLE [Concomitant]
     Dosage: UNK MG, 1X/DAY
     Dates: start: 20100806
  4. METFORMIN HCL [Suspect]
     Indication: DIABETES MELLITUS
     Dosage: 0.85 MG, 2X/DAY
     Route: 048
     Dates: start: 20100806, end: 20100919
  5. ENALAPRIL MALEATE [Suspect]
     Indication: HYPERTENSION
     Dosage: 5 MG, 2X/DAY
     Route: 048
     Dates: start: 20100807, end: 20100919
  6. CARVEDILOL [Concomitant]
     Dosage: UNK
     Dates: start: 20100907
  7. KETOISDIN [Concomitant]
     Dosage: UNK
     Dates: start: 20100824
  8. SEGURIL [Suspect]
     Indication: DYSLIPIDAEMIA
     Dosage: 40 MG, 1X/DAY
     Route: 048
     Dates: start: 20100714, end: 20100919
  9. CARDYL [Concomitant]
     Indication: CORONARY ARTERY DISEASE
     Dosage: 80 MG, 1X/DAY
     Dates: start: 20100714

REACTIONS (2)
  - RENAL TUBULAR NECROSIS [None]
  - LACTIC ACIDOSIS [None]
